FAERS Safety Report 10223574 (Version 1)
Quarter: 2014Q2

REPORT INFORMATION
  Report Type: Spontaneous
  Country: BE (occurrence: BE)
  Receive Date: 20140609
  Receipt Date: 20140609
  Transmission Date: 20141212
  Serious: Yes (Hospitalization, Other)
  Sender: FDA-Public Use
  Company Number: BE-009507513-1406BEL000909

PATIENT
  Sex: Female

DRUGS (1)
  1. DIPROPHOS [Suspect]
     Dosage: UNK
     Dates: start: 2014

REACTIONS (5)
  - Spinal fusion surgery [Unknown]
  - Intervertebral disc operation [Unknown]
  - Drug ineffective [Unknown]
  - Pain in extremity [Not Recovered/Not Resolved]
  - Abasia [Unknown]
